FAERS Safety Report 20116200 (Version 1)
Quarter: 2021Q4

REPORT INFORMATION
  Report Type: Other
  Country: CN (occurrence: None)
  Receive Date: 20211126
  Receipt Date: 20211126
  Transmission Date: 20220303
  Serious: Yes (Other)
  Sender: FDA-Public Use
  Company Number: CN-ROCHE-2963610

PATIENT

DRUGS (2)
  1. TOCILIZUMAB [Suspect]
     Active Substance: TOCILIZUMAB
     Indication: Neuromyelitis optica spectrum disorder
     Dosage: WITHIN 2 WEEKS OF THE ATTACK ONSET, FOLLOWED BY A ROUTINE INFUSION AT 4-WEEK INTERVALS
     Route: 042
  2. PREDNISONE [Concomitant]
     Active Substance: PREDNISONE

REACTIONS (9)
  - Hepatotoxicity [Unknown]
  - Urinary tract infection [Unknown]
  - Hypoproteinaemia [Unknown]
  - Anaemia [Unknown]
  - Hyperlipidaemia [Unknown]
  - Nausea [Unknown]
  - Headache [Unknown]
  - Fibrin D dimer increased [Unknown]
  - Infection [Unknown]
